FAERS Safety Report 26046733 (Version 1)
Quarter: 2025Q4

REPORT INFORMATION
  Report Type: Spontaneous
  Country: US (occurrence: US)
  Receive Date: 20251114
  Receipt Date: 20251114
  Transmission Date: 20260118
  Serious: No
  Sender: SANOFI AVENTIS
  Company Number: US-SA-2025SA339558

PATIENT
  Age: 42 Year
  Sex: Male

DRUGS (3)
  1. ALTUVIIIO [Suspect]
     Active Substance: EFANESOCTOCOG ALFA
     Indication: Factor VIII deficiency
     Dosage: 3800 UNITS; (3420-4180) SLOW IV PUSH; QW
     Route: 042
     Dates: start: 202305
  2. ALTUVIIIO [Suspect]
     Active Substance: EFANESOCTOCOG ALFA
     Dosage: 3800 UNITS; (3420-4180) SLOW IV PUSH; QOW
     Route: 042
     Dates: start: 202305
  3. ALTUVIIIO [Suspect]
     Active Substance: EFANESOCTOCOG ALFA
     Dosage: 3800 UNITS; (3420-4180) SLOW IV PUSH; PRN
     Route: 042
     Dates: start: 202305

REACTIONS (1)
  - Bladder disorder [Unknown]

NARRATIVE: CASE EVENT DATE: 20251022
